FAERS Safety Report 26115517 (Version 1)
Quarter: 2025Q4

REPORT INFORMATION
  Report Type: Spontaneous
  Country: QA (occurrence: QA)
  Receive Date: 20251203
  Receipt Date: 20251203
  Transmission Date: 20260118
  Serious: Yes (Other)
  Sender: RECORDATI
  Company Number: QA-ORPHANEU-2025008657

PATIENT
  Age: 40 Year
  Sex: Female

DRUGS (1)
  1. PASIREOTIDE [Suspect]
     Active Substance: PASIREOTIDE
     Indication: Acromegaly
     Dosage: 40 MG, UNKNOWN FREQUENCY
     Dates: start: 202311

REACTIONS (2)
  - Diabetes mellitus inadequate control [Recovered/Resolved]
  - Adverse drug reaction [Recovered/Resolved]

NARRATIVE: CASE EVENT DATE: 20230101
